FAERS Safety Report 13088196 (Version 1)
Quarter: 2017Q1

REPORT INFORMATION
  Report Type: Spontaneous
  Country: US (occurrence: US)
  Receive Date: 20170103
  Receipt Date: 20170103
  Transmission Date: 20170428
  Serious: Yes (Other)
  Sender: FDA-Public Use
  Company Number: None

PATIENT
  Age: 30 Year
  Sex: Female
  Weight: 118 kg

DRUGS (2)
  1. TRIPLE ANTIBIOTIC OINTMENT [Suspect]
     Active Substance: BACITRACIN ZINC\NEOMYCIN\NEOMYCIN SULFATE\POLYMYXIN B SULFATE
     Indication: INFECTION PROPHYLAXIS
     Route: 061
     Dates: start: 20161231, end: 20170102
  2. TRIPLE ANTIBIOTIC OINTMENT [Suspect]
     Active Substance: BACITRACIN ZINC\NEOMYCIN\NEOMYCIN SULFATE\POLYMYXIN B SULFATE
     Indication: TATTOO
     Route: 061
     Dates: start: 20161231, end: 20170102

REACTIONS (6)
  - Eye discharge [None]
  - Blepharospasm [None]
  - Ocular hyperaemia [None]
  - Vision blurred [None]
  - Eye swelling [None]
  - Erythema [None]

NARRATIVE: CASE EVENT DATE: 20170103
